FAERS Safety Report 4763783-7 (Version None)
Quarter: 2005Q3

REPORT INFORMATION
  Report Type: 
  Country: None (occurrence: None)
  Receive Date: 20050908
  Receipt Date: 20050831
  Transmission Date: 20060218
  Serious: Yes (Death, Other)
  Sender: FDA-Public Use
  Company Number: PHBS2005BR12858

PATIENT
  Age: 48 Year
  Sex: Female

DRUGS (11)
  1. ZOMETA [Suspect]
     Indication: METASTASES TO BONE
     Dosage: 4 MG, QMO
     Route: 042
     Dates: start: 20020501, end: 20050401
  2. ENDOXAN [Concomitant]
     Route: 065
  3. FLUOROURACIL [Concomitant]
     Route: 065
  4. METHOTREXATE [Concomitant]
     Route: 065
  5. TAXOL [Concomitant]
     Route: 065
  6. NOLVADEX [Concomitant]
     Route: 065
  7. TAXOTERE [Concomitant]
     Route: 065
  8. RADIOTHERAPY [Concomitant]
     Dosage: 5000 CGY RIGHT BREAST
     Route: 065
     Dates: start: 20030501
  9. NAVELBINE [Concomitant]
     Route: 065
  10. CARBOPLATIN [Concomitant]
     Route: 065
  11. GENTAMICIN [Concomitant]
     Route: 065

REACTIONS (16)
  - ASEPTIC NECROSIS BONE [None]
  - BACTERIAL INFECTION [None]
  - BONE DISORDER [None]
  - FISTULA [None]
  - HYPERPLASIA [None]
  - MALIGNANT NEOPLASM PROGRESSION [None]
  - METASTASES TO CENTRAL NERVOUS SYSTEM [None]
  - METASTASES TO LUNG [None]
  - NECROSIS [None]
  - OSTEONECROSIS [None]
  - POLYP [None]
  - RADICULAR CYST [None]
  - SINUS POLYP [None]
  - SURGERY [None]
  - TOOTH ABSCESS [None]
  - TOOTH INFECTION [None]
